FAERS Safety Report 5487566-8 (Version None)
Quarter: 2007Q4

REPORT INFORMATION
  Report Type: 
  Country: None (occurrence: None)
  Receive Date: 20071015
  Receipt Date: 20071002
  Transmission Date: 20080405
  Serious: Yes (Other)
  Sender: FDA-Public Use
  Company Number: 162306USA

PATIENT
  Age: 60 Year
  Sex: Female

DRUGS (2)
  1. PIMOZIDE TABLETS (PIMOZIDE) [Suspect]
     Indication: DEPRESSION
     Dosage: 1 MG (1 MG, 1 IN 1 D) ORAL
     Route: 048
     Dates: start: 19980101
  2. PROMETHAZINE [Suspect]

REACTIONS (1)
  - DIABETES MELLITUS [None]
